FAERS Safety Report 16046820 (Version 1)
Quarter: 2019Q2

REPORT INFORMATION
  Report Type: Spontaneous
  Country: US (occurrence: US)
  Receive Date: 20190307
  Receipt Date: 20190307
  Transmission Date: 20190711
  Serious: Yes (Other)
  Sender: FDA-Public Use
  Company Number: None

PATIENT
  Age: 62 Year
  Sex: Female
  Weight: 59.9 kg

DRUGS (6)
  1. OLARATUMAB [Concomitant]
     Active Substance: OLARATUMAB
     Dates: start: 20181107, end: 20190109
  2. DEXAMETHASONE. [Concomitant]
     Active Substance: DEXAMETHASONE
     Dates: start: 20181107
  3. 0.9% SODIUM CHLORIDE (DILUENT) [Concomitant]
     Dates: start: 20181107, end: 20181107
  4. PALONOSETRON. [Concomitant]
     Active Substance: PALONOSETRON HYDROCHLORIDE
     Dates: start: 20181107
  5. DOXORUBICIN [Concomitant]
     Active Substance: DOXORUBICIN
     Dates: start: 20181107
  6. EMEND (FOSAPREPITANT DIMEGLUMINE) [Suspect]
     Active Substance: FOSAPREPITANT DIMEGLUMINE
     Indication: PREMEDICATION
     Dosage: ?          OTHER FREQUENCY:ONCE;?
     Route: 042
     Dates: start: 20181107, end: 20181107

REACTIONS (8)
  - Vision blurred [None]
  - Infusion related reaction [None]
  - Dysgeusia [None]
  - Vomiting [None]
  - Nausea [None]
  - Chest pain [None]
  - Abdominal pain [None]
  - Flushing [None]

NARRATIVE: CASE EVENT DATE: 20181107
